FAERS Safety Report 4517800-X (Version None)
Quarter: 2004Q4

REPORT INFORMATION
  Report Type: 
  Country: None (occurrence: None)
  Receive Date: 20041201
  Receipt Date: 20041201
  Transmission Date: 20050328
  Serious: Yes (Life-Threatening, Hospitalization)
  Sender: FDA-Public Use
  Company Number: None

PATIENT
  Age: 53 Year
  Sex: Male
  Weight: 86.1834 kg

DRUGS (2)
  1. AMIFOSTINE [Suspect]
     Indication: PLASMACYTOMA
     Dosage: 500MG-5 DAYS WK
  2. RADIATION [Concomitant]

REACTIONS (1)
  - ANAPHYLACTIC SHOCK [None]
